FAERS Safety Report 15905418 (Version 1)
Quarter: 2019Q1

REPORT INFORMATION
  Report Type: Spontaneous
  Country: US (occurrence: US)
  Receive Date: 20190201
  Receipt Date: 20190201
  Transmission Date: 20190417
  Serious: Yes (Life-Threatening, Disabling)
  Sender: FDA-Public Use
  Company Number: None

PATIENT
  Age: 44 Year
  Sex: Female
  Weight: 85.5 kg

DRUGS (4)
  1. SPIRATICLONE [Concomitant]
  2. DOXYCYCLINE. [Concomitant]
     Active Substance: DOXYCYCLINE
  3. DIAZEPAM. [Suspect]
     Active Substance: DIAZEPAM
     Indication: ANXIETY
     Dosage: ?          QUANTITY:2 TABLET(S);?
     Route: 048
  4. ARMOUR THYROID [Concomitant]
     Active Substance: THYROID, PORCINE

REACTIONS (15)
  - Neck pain [None]
  - Paranoia [None]
  - Memory impairment [None]
  - Depression [None]
  - Irritability [None]
  - Sensory disturbance [None]
  - Retching [None]
  - Toothache [None]
  - Insomnia [None]
  - Hallucination [None]
  - Musculoskeletal pain [None]
  - Restless legs syndrome [None]
  - Tremor [None]
  - Pain [None]
  - Suicidal ideation [None]

NARRATIVE: CASE EVENT DATE: 20181224
